FAERS Safety Report 13030686 (Version 1)
Quarter: 2016Q4

REPORT INFORMATION
  Report Type: Spontaneous
  Country: JP (occurrence: JP)
  Receive Date: 20161215
  Receipt Date: 20161215
  Transmission Date: 20170207
  Serious: Yes (Hospitalization, Other)
  Sender: FDA-Public Use
  Company Number: JP-PFIZER INC-2016573865

PATIENT
  Age: 56 Year
  Sex: Female
  Weight: 48 kg

DRUGS (12)
  1. OLANZAPINE. [Suspect]
     Active Substance: OLANZAPINE
     Indication: DEPRESSION
     Dosage: 20 MG, DAILY
     Route: 048
     Dates: start: 20160914
  2. ENSURE [Concomitant]
     Active Substance: AMINO ACIDS\DEXTROSE\ELECTROLYTES NOS\SOYBEAN OIL\VITAMINS
     Dosage: UNK
     Dates: start: 20160920, end: 20161001
  3. TWINPAL [Concomitant]
     Active Substance: AMINO ACIDS\CARBOHYDRATES\ELECTROLYTES NOS\VITAMINS
     Dosage: UNK
     Dates: start: 20161003
  4. DAIKENCHUTO [Concomitant]
     Active Substance: HERBALS
     Dosage: UNK
     Dates: start: 20160930
  5. SHINLUCK [Concomitant]
     Active Substance: SODIUM PICOSULFATE
     Dosage: UNK
     Dates: start: 20160930
  6. SOLITA-T3 [Concomitant]
     Active Substance: POTASSIUM CHLORIDE\SODIUM CHLORIDE\SODIUM LACTATE
     Dosage: UNK
     Dates: start: 20161004, end: 20161005
  7. MAGMITT [Concomitant]
     Active Substance: MAGNESIUM OXIDE
     Dosage: UNK
     Dates: start: 20160930
  8. POTACOL R [Concomitant]
     Dosage: UNK
     Dates: start: 20161007, end: 20161011
  9. AMITIZA [Concomitant]
     Active Substance: LUBIPROSTONE
     Indication: CONSTIPATION
     Dosage: 1 DF, 2X/DAY
     Dates: start: 20161003, end: 20161007
  10. ALOSENN [Concomitant]
     Active Substance: SENNA LEAF
     Dosage: UNK
     Dates: start: 20160930, end: 20161002
  11. LACTEC [Concomitant]
     Active Substance: CALCIUM CHLORIDE ANHYDROUS\POTASSIUM CHLORIDE\SODIUM CHLORIDE\SODIUM LACTATE
     Dosage: UNK
     Dates: start: 20161004, end: 20161005
  12. EFFEXOR [Suspect]
     Active Substance: VENLAFAXINE HYDROCHLORIDE
     Indication: DEPRESSION
     Dosage: 37.5 MG, DAILY
     Route: 048
     Dates: start: 20160914

REACTIONS (3)
  - Gastrointestinal haemorrhage [Unknown]
  - White blood cell count decreased [Recovered/Resolved]
  - Schizophrenia [Unknown]

NARRATIVE: CASE EVENT DATE: 20161007
